FAERS Safety Report 22963759 (Version 4)
Quarter: 2024Q1

REPORT INFORMATION
  Report Type: Spontaneous
  Country: CA (occurrence: CA)
  Receive Date: 20230921
  Receipt Date: 20240216
  Transmission Date: 20240410
  Serious: Yes (Other)
  Sender: FDA-Public Use
  Company Number: CA-CELLTRION INC.-2022CA006692

PATIENT

DRUGS (5)
  1. INFLECTRA [Suspect]
     Active Substance: INFLIXIMAB-DYYB
     Indication: Crohn^s disease
     Dosage: 13 MG/KG EVERY 8 WEEK, 1200 MG FIXED DOSE
     Route: 042
     Dates: start: 20220322
  2. INFLECTRA [Suspect]
     Active Substance: INFLIXIMAB-DYYB
     Dosage: 13 MG/KG, EVERY 8 WEEK, 1200 MG FIXED DOSE
     Route: 042
     Dates: start: 20221025
  3. INFLECTRA [Suspect]
     Active Substance: INFLIXIMAB-DYYB
     Dosage: 13 MG/KG, EVERY 8 WEEKS, 1200 MG FIXED DOSE,
     Route: 042
     Dates: start: 20230309
  4. INFLECTRA [Suspect]
     Active Substance: INFLIXIMAB-DYYB
     Dosage: 15 MG/KG EVERY 8 WEEK
     Route: 042
     Dates: start: 20230518
  5. INFLECTRA [Suspect]
     Active Substance: INFLIXIMAB-DYYB
     Dosage: 15 MG/KG EVERY 8 WEEK
     Route: 042
     Dates: start: 20230720

REACTIONS (26)
  - Streptococcal infection [Recovering/Resolving]
  - Forearm fracture [Recovering/Resolving]
  - Drug ineffective [Not Recovered/Not Resolved]
  - Drug level decreased [Not Recovered/Not Resolved]
  - Drug specific antibody present [Unknown]
  - Pain [Not Recovered/Not Resolved]
  - Infection [Not Recovered/Not Resolved]
  - Rhinorrhoea [Not Recovered/Not Resolved]
  - Nasal congestion [Not Recovered/Not Resolved]
  - Headache [Not Recovered/Not Resolved]
  - Streptococcal infection [Recovering/Resolving]
  - Impaired healing [Recovering/Resolving]
  - Wound secretion [Recovering/Resolving]
  - Postoperative wound infection [Recovering/Resolving]
  - Wound complication [Recovering/Resolving]
  - Postoperative wound complication [Recovering/Resolving]
  - Malaise [Unknown]
  - Muscle spasms [Not Recovered/Not Resolved]
  - Varicella [Unknown]
  - Dysphagia [Unknown]
  - Oral discomfort [Unknown]
  - Skin induration [Recovering/Resolving]
  - Off label use [Unknown]
  - Off label use [Unknown]
  - Off label use [Unknown]
  - Intentional product use issue [Unknown]

NARRATIVE: CASE EVENT DATE: 20220301
